FAERS Safety Report 19376748 (Version 7)
Quarter: 2021Q3

REPORT INFORMATION
  Report Type: Report from Study
  Country: US (occurrence: US)
  Receive Date: 20210604
  Receipt Date: 20210913
  Transmission Date: 20211014
  Serious: No
  Sender: FDA-Public Use
  Company Number: NVSC2021US119086

PATIENT
  Sex: Female

DRUGS (4)
  1. CARVEDILOL. [Concomitant]
     Active Substance: CARVEDILOL
     Indication: PRODUCT USED FOR UNKNOWN INDICATION
     Dosage: 12.5 MG
     Route: 048
  2. CARVEDILOL. [Concomitant]
     Active Substance: CARVEDILOL
     Dosage: 0.5 DF
     Route: 065
  3. ENTRESTO [Suspect]
     Active Substance: SACUBITRIL\VALSARTAN
     Indication: PRODUCT USED FOR UNKNOWN INDICATION
     Dosage: 50 MG, BID (24/26 MG)
     Route: 048
     Dates: start: 20210408
  4. ASPIRIN 81 [Concomitant]
     Active Substance: ASPIRIN
     Indication: PRODUCT USED FOR UNKNOWN INDICATION
     Dosage: UNK
     Route: 065

REACTIONS (16)
  - Nerve compression [Unknown]
  - Chest discomfort [Unknown]
  - Heart rate decreased [Unknown]
  - Heart rate abnormal [Unknown]
  - Post-traumatic stress disorder [Unknown]
  - Pain [Not Recovered/Not Resolved]
  - Memory impairment [Unknown]
  - Respiratory rate decreased [Unknown]
  - Insomnia [Unknown]
  - Wrong technique in product usage process [Unknown]
  - Fatigue [Unknown]
  - Stress [Unknown]
  - Blood potassium decreased [Unknown]
  - Hypertension [Unknown]
  - Blood sodium decreased [Unknown]
  - Inappropriate schedule of product administration [Unknown]
